FAERS Safety Report 25587686 (Version 1)
Quarter: 2025Q3

REPORT INFORMATION
  Report Type: Spontaneous
  Country: BR (occurrence: BR)
  Receive Date: 20250721
  Receipt Date: 20250721
  Transmission Date: 20251021
  Serious: Yes (Other)
  Sender: NOVARTIS
  Company Number: BR-002147023-NVSC2025BR114245

PATIENT
  Sex: Female
  Weight: 70 kg

DRUGS (2)
  1. KISQALI [Suspect]
     Active Substance: RIBOCICLIB SUCCINATE
     Indication: Breast cancer
     Dosage: 3 DOSAGE FORM, QD (3 TABLETS DAILY FOR  21 DAYS AND 7-DAY BREAK)
     Route: 065
  2. LETROZOLE [Suspect]
     Active Substance: LETROZOLE
     Indication: Breast cancer
     Dosage: 1 DOSAGE FORM, QD (1 TABLET A DAY)
     Route: 065

REACTIONS (3)
  - Immunodeficiency [Unknown]
  - Pleural effusion [Unknown]
  - Inappropriate schedule of product administration [Unknown]
